FAERS Safety Report 7356469-6 (Version None)
Quarter: 2011Q1

REPORT INFORMATION
  Report Type: 
  Country: None (occurrence: None)
  Receive Date: 20110316
  Receipt Date: 20110314
  Transmission Date: 20110831
  Serious: Yes (Hospitalization)
  Sender: FDA-Public Use
  Company Number: ES-ELI_LILLY_AND_COMPANY-ES201103004289

PATIENT
  Sex: Female
  Weight: 100 kg

DRUGS (8)
  1. FORTEO [Suspect]
     Indication: OSTEOPOROSIS
     Dosage: 20 UG, DAILY (1/D)
     Route: 058
     Dates: start: 20110223, end: 20110311
  2. ENALAPRIL MALEATE [Concomitant]
     Indication: HYPERTENSION
     Dosage: 20 MG, DAILY (1/D)
     Route: 048
  3. AMLODIPINO                         /00972401/ [Concomitant]
     Dosage: 5 MG, DAILY (1/D)
     Route: 048
  4. ASPIRIN [Concomitant]
     Dosage: 1 D/F, DAILY (1/D)
     Route: 048
  5. METFORMIN HCL [Concomitant]
     Indication: DIABETES MELLITUS
     Dosage: 1 D/F, EVERY 8 HRS
     Route: 048
  6. ALLOPURINOL [Concomitant]
     Dosage: 300 MG, DAILY (1/D)
     Route: 048
  7. FENOFIBRATO [Concomitant]
     Dosage: 160 MG, 2/D
     Route: 048
  8. PRANDIN [Concomitant]
     Indication: DIABETES MELLITUS
     Dosage: 1 D/F, EVERY 8 HRS
     Route: 048

REACTIONS (1)
  - RENAL COLIC [None]
